FAERS Safety Report 4866681-3 (Version None)
Quarter: 2005Q4

REPORT INFORMATION
  Report Type: 
  Country: None (occurrence: None)
  Receive Date: 20051221
  Receipt Date: 20051212
  Transmission Date: 20060501
  Serious: Yes (Death)
  Sender: FDA-Public Use
  Company Number: 2005168481

PATIENT
  Age: 42 Year
  Sex: Male
  Weight: 73 kg

DRUGS (3)
  1. TAHOR (ATORVASTATIN) [Suspect]
     Indication: HYPERCHOLESTEROLAEMIA
     Dosage: 40 MG (1 IN 1 D), ORAL
     Route: 048
     Dates: start: 20041206, end: 20041216
  2. FLUVASTATIN (FLUVASTATIN) [Suspect]
     Indication: HYPERCHOLESTEROLAEMIA
     Dosage: 40 MG (40 MG, 1 IN 1 D), ORAL
     Route: 048
     Dates: start: 20041216, end: 20041221
  3. PREDNISOLONE SODIUM SULFOBENZOATE (PREDNISOLONE SODIUM SULFOBENZOATE) [Concomitant]

REACTIONS (34)
  - ACUTE RESPIRATORY DISTRESS SYNDROME [None]
  - ALOPECIA [None]
  - ANTINUCLEAR ANTIBODY POSITIVE [None]
  - ARTHRALGIA [None]
  - ARTHRITIS [None]
  - BLOOD SODIUM INCREASED [None]
  - BLOOD TRIGLYCERIDES INCREASED [None]
  - COMPLEMENT FACTOR DECREASED [None]
  - CONNECTIVE TISSUE DISORDER [None]
  - CYTOLYTIC HEPATITIS [None]
  - DERMATOMYOSITIS [None]
  - ERYTHEMA [None]
  - FACE OEDEMA [None]
  - GASTRIC HAEMORRHAGE [None]
  - GENERAL PHYSICAL HEALTH DETERIORATION [None]
  - HAEMATEMESIS [None]
  - HAEMODIALYSIS [None]
  - HAEMODILUTION [None]
  - HAEMODYNAMIC INSTABILITY [None]
  - HYPOXIA [None]
  - INTERSTITIAL LUNG DISEASE [None]
  - MUSCLE ATROPHY [None]
  - MYALGIA [None]
  - NAUSEA [None]
  - PULMONARY INTERSTITIAL EMPHYSEMA SYNDROME [None]
  - RENAL FAILURE [None]
  - RESPIRATORY FAILURE [None]
  - RESTRICTIVE PULMONARY DISEASE [None]
  - SEPTIC SHOCK [None]
  - SKIN LESION [None]
  - SMOOTH MUSCLE ANTIBODY POSITIVE [None]
  - SYSTEMIC LUPUS ERYTHEMATOSUS [None]
  - VASCULITIS [None]
  - WEIGHT DECREASED [None]
